FAERS Safety Report 9379757 (Version 1)
Quarter: 2013Q3

REPORT INFORMATION
  Report Type: Spontaneous
  Country: IT (occurrence: IT)
  Receive Date: 20130702
  Receipt Date: 20130702
  Transmission Date: 20140515
  Serious: Yes (Hospitalization)
  Sender: FDA-Public Use
  Company Number: PHHY2013IT066249

PATIENT
  Age: 71 Year
  Sex: Female

DRUGS (7)
  1. ALLOPURINOL [Suspect]
     Dosage: 100 MG, QD
     Route: 048
     Dates: start: 20130513, end: 20130603
  2. TIKLID [Concomitant]
  3. ACTOS [Concomitant]
  4. CARDURA [Concomitant]
  5. OLPRESS [Concomitant]
  6. PRAVASTATIN [Concomitant]
  7. SITAGLIPTIN [Concomitant]

REACTIONS (5)
  - Hyperaemia [Recovering/Resolving]
  - Toxic skin eruption [Recovering/Resolving]
  - Urticaria [Recovering/Resolving]
  - Angioedema [Recovering/Resolving]
  - Pyrexia [Recovering/Resolving]
